FAERS Safety Report 19270460 (Version 1)
Quarter: 2021Q2

REPORT INFORMATION
  Report Type: Report from Study
  Country: ES (occurrence: ES)
  Receive Date: 20210518
  Receipt Date: 20210518
  Transmission Date: 20210717
  Serious: Yes (Hospitalization)
  Sender: FDA-Public Use
  Company Number: ES-GLAXOSMITHKLINE-ES2021EME102581

PATIENT
  Age: 46 Year
  Sex: Female

DRUGS (1)
  1. NIRAPARIB [Suspect]
     Active Substance: NIRAPARIB
     Indication: OVARIAN NEOPLASM
     Dosage: UNK

REACTIONS (1)
  - Ovarian neoplasm surgery [Not Recovered/Not Resolved]

NARRATIVE: CASE EVENT DATE: 20210430
